FAERS Safety Report 23455089 (Version 1)
Quarter: 2024Q1

REPORT INFORMATION
  Report Type: Spontaneous
  Country: US (occurrence: US)
  Receive Date: 20240130
  Receipt Date: 20240130
  Transmission Date: 20240410
  Serious: Yes (Other)
  Sender: FDA-Public Use
  Company Number: US-STRIDES ARCOLAB LIMITED-2023SP015334

PATIENT
  Age: 6 Decade
  Sex: Male

DRUGS (24)
  1. METHOTREXATE [Suspect]
     Active Substance: METHOTREXATE
     Indication: Immunosuppressant drug therapy
     Dosage: UNK
     Route: 065
  2. METHOTREXATE [Suspect]
     Active Substance: METHOTREXATE
     Indication: Chronic graft versus host disease in skin
  3. METHOTREXATE [Suspect]
     Active Substance: METHOTREXATE
     Indication: Chronic graft versus host disease in eye
  4. METHOTREXATE [Suspect]
     Active Substance: METHOTREXATE
     Indication: Chronic graft versus host disease in intestine
  5. TACROLIMUS [Suspect]
     Active Substance: TACROLIMUS
     Indication: Immunosuppressant drug therapy
     Dosage: UNK
     Route: 065
  6. TACROLIMUS [Suspect]
     Active Substance: TACROLIMUS
     Indication: Chronic graft versus host disease in skin
  7. TACROLIMUS [Suspect]
     Active Substance: TACROLIMUS
     Indication: Chronic graft versus host disease in eye
  8. TACROLIMUS [Suspect]
     Active Substance: TACROLIMUS
     Indication: Chronic graft versus host disease in intestine
  9. ACYCLOVIR [Suspect]
     Active Substance: ACYCLOVIR
     Indication: Ulcer
     Dosage: UNK
     Route: 065
  10. ACYCLOVIR [Suspect]
     Active Substance: ACYCLOVIR
     Indication: Haemorrhage
  11. AMPHOTERICIN B [Concomitant]
     Active Substance: AMPHOTERICIN B
     Indication: Ulcer
     Dosage: UNK
     Route: 065
  12. AMPHOTERICIN B [Concomitant]
     Active Substance: AMPHOTERICIN B
     Indication: Haemorrhage
  13. DAPSONE [Concomitant]
     Active Substance: DAPSONE
     Indication: Ulcer
     Dosage: UNK
     Route: 065
  14. DAPSONE [Concomitant]
     Active Substance: DAPSONE
     Indication: Haemorrhage
  15. MICAFUNGIN [Concomitant]
     Active Substance: MICAFUNGIN SODIUM
     Indication: Ulcer
     Dosage: UNK
     Route: 065
  16. MICAFUNGIN [Concomitant]
     Active Substance: MICAFUNGIN SODIUM
     Indication: Haemorrhage
  17. LEVOFLOXACIN [Concomitant]
     Active Substance: LEVOFLOXACIN
     Indication: Ulcer
     Dosage: UNK
     Route: 065
  18. LEVOFLOXACIN [Concomitant]
     Active Substance: LEVOFLOXACIN
     Indication: Haemorrhage
  19. PENICILLIN V POTASSIUM [Concomitant]
     Active Substance: PENICILLIN V POTASSIUM
     Indication: Ulcer
     Dosage: UNK
     Route: 065
  20. PENICILLIN V POTASSIUM [Concomitant]
     Active Substance: PENICILLIN V POTASSIUM
     Indication: Haemorrhage
  21. PENTAMIDINE [Concomitant]
     Active Substance: PENTAMIDINE
     Indication: Ulcer
     Dosage: UNK
     Route: 065
  22. PENTAMIDINE [Concomitant]
     Active Substance: PENTAMIDINE
     Indication: Haemorrhage
  23. POSACONAZOLE [Concomitant]
     Active Substance: POSACONAZOLE
     Indication: Ulcer
     Dosage: UNK
     Route: 065
  24. POSACONAZOLE [Concomitant]
     Active Substance: POSACONAZOLE
     Indication: Haemorrhage

REACTIONS (2)
  - Skin angiosarcoma [Recovered/Resolved]
  - Off label use [Unknown]
